FAERS Safety Report 21072225 (Version 1)
Quarter: 2022Q3

REPORT INFORMATION
  Report Type: Spontaneous
  Country: US (occurrence: US)
  Receive Date: 20220712
  Receipt Date: 20220712
  Transmission Date: 20221026
  Serious: No
  Sender: FDA-Public Use
  Company Number: US-FOUNDATIONCONSUMERHC-2022-US-006364

PATIENT
  Age: 19 Year
  Sex: Female
  Weight: 58.97 kg

DRUGS (3)
  1. AFTERA [Suspect]
     Active Substance: LEVONORGESTREL
     Indication: Post coital contraception
     Dosage: 1.5 MG
     Route: 048
     Dates: start: 20220204, end: 20220204
  2. UNSPECIFIED INGREDIENT [Concomitant]
     Active Substance: UNSPECIFIED INGREDIENT
     Dosage: MISSED A DOSE TWO DAYS PRIOR TO UNPROTECTED INTERCOURSE
     Dates: start: 2020
  3. CLARITIN [Concomitant]
     Active Substance: LORATADINE

REACTIONS (1)
  - Menstruation delayed [Not Recovered/Not Resolved]

NARRATIVE: CASE EVENT DATE: 20220226
